FAERS Safety Report 7525739-0 (Version None)
Quarter: 2011Q2

REPORT INFORMATION
  Report Type: 
  Country: None (occurrence: None)
  Receive Date: 20110606
  Receipt Date: 20110602
  Transmission Date: 20111010
  Serious: Yes (Death)
  Sender: FDA-Public Use
  Company Number: PHHY2011MX38309

PATIENT
  Sex: Male

DRUGS (3)
  1. INSULIN [Concomitant]
  2. EXFORGE [Suspect]
     Indication: HYPERTENSION
     Dosage: 160 MG VALS AND 5 MG AMLO, 1 DF PER DAY
     Dates: start: 20110307
  3. ENALAPRIL MALEATE [Concomitant]

REACTIONS (5)
  - DEPRESSION [None]
  - DECREASED APPETITE [None]
  - RENAL FAILURE CHRONIC [None]
  - DIABETES MELLITUS [None]
  - DIABETIC ENCEPHALOPATHY [None]
